FAERS Safety Report 5416572-4 (Version None)
Quarter: 2007Q3

REPORT INFORMATION
  Report Type: 
  Country: None (occurrence: None)
  Receive Date: 20070814
  Receipt Date: 20070814
  Transmission Date: 20080115
  Serious: Yes (Life-Threatening, Hospitalization, Disabling, Other)
  Sender: FDA-Public Use
  Company Number: None

PATIENT
  Age: 37 Year
  Sex: Female
  Weight: 61.2356 kg

DRUGS (1)
  1. SEASONIQUE [Suspect]
     Indication: MENSTRUAL CYCLE MANAGEMENT
     Dosage: 1 PILL DAILY PO
     Route: 048
     Dates: start: 20061227, end: 20070218

REACTIONS (7)
  - BACK PAIN [None]
  - BLOOD LACTATE DEHYDROGENASE INCREASED [None]
  - CONDITION AGGRAVATED [None]
  - PELVIC PAIN [None]
  - UTERINE ENLARGEMENT [None]
  - UTERINE LEIOMYOMA [None]
  - VAGINAL HAEMORRHAGE [None]
